FAERS Safety Report 24401334 (Version 1)
Quarter: 2024Q4

REPORT INFORMATION
  Report Type: Spontaneous
  Country: NO (occurrence: NO)
  Receive Date: 20241007
  Receipt Date: 20241007
  Transmission Date: 20250114
  Serious: Yes (Life-Threatening, Other)
  Sender: SANDOZ
  Company Number: None

PATIENT
  Age: 47 Year
  Sex: Female

DRUGS (1)
  1. ESTRADIOL [Suspect]
     Active Substance: ESTRADIOL
     Indication: Menopausal symptoms
     Dosage: 50 MCG TWICE PER WEEK. INITIALLY 25 MCG. INCREASED GRADUALLY TO 50 MCG.
     Route: 062
     Dates: start: 20220511, end: 20240902

REACTIONS (3)
  - Suicidal ideation [Recovering/Resolving]
  - Crying [Recovering/Resolving]
  - Anger [Unknown]

NARRATIVE: CASE EVENT DATE: 20230101
